FAERS Safety Report 7569875-1 (Version None)
Quarter: 2011Q2

REPORT INFORMATION
  Report Type: 
  Country: None (occurrence: None)
  Receive Date: 20110624
  Receipt Date: 20110620
  Transmission Date: 20111010
  Serious: Yes (Other)
  Sender: FDA-Public Use
  Company Number: US-ABBOTT-11P-163-0728412-00

PATIENT
  Sex: Female
  Weight: 66.284 kg

DRUGS (9)
  1. ASPIRIN [Concomitant]
     Indication: PRODUCT USED FOR UNKNOWN INDICATION
  2. METHOTREXATE [Concomitant]
     Indication: PRODUCT USED FOR UNKNOWN INDICATION
     Dates: start: 20080730, end: 20110613
  3. PREDNISONE [Concomitant]
     Indication: PRODUCT USED FOR UNKNOWN INDICATION
     Dosage: 10-20 MG
     Dates: start: 20080730, end: 20110613
  4. HUMIRA [Suspect]
     Indication: PRODUCT USED FOR UNKNOWN INDICATION
     Dates: start: 20081218, end: 20110127
  5. CLONIDINE [Concomitant]
     Indication: HYPERTENSION
  6. ENBREL [Concomitant]
     Indication: PRODUCT USED FOR UNKNOWN INDICATION
     Dates: start: 20081006, end: 20081106
  7. HUMIRA [Suspect]
  8. UNKNOWN BLOOD PRESSURE MEDICATION [Concomitant]
     Indication: PRODUCT USED FOR UNKNOWN INDICATION
  9. UNKNOWN BLOOD PRESSURE MEDICATION [Concomitant]

REACTIONS (4)
  - HISTOPLASMOSIS [None]
  - CARDIOMEGALY [None]
  - MYOCARDIAL INFARCTION [None]
  - ARTHRALGIA [None]
